FAERS Safety Report 7097088-9 (Version None)
Quarter: 2010Q4

REPORT INFORMATION
  Report Type: 
  Country: None (occurrence: None)
  Receive Date: 20101111
  Receipt Date: 20101105
  Transmission Date: 20110411
  Serious: No
  Sender: FDA-Public Use
  Company Number: US-TEVA-254685USA

PATIENT
  Sex: Female
  Weight: 101.24 kg

DRUGS (2)
  1. AZILECT [Suspect]
     Indication: PARKINSON'S DISEASE
     Route: 048
     Dates: start: 20101029
  2. MAGNESIUM [Interacting]

REACTIONS (2)
  - DRUG INTERACTION [None]
  - PRURITUS GENERALISED [None]
